FAERS Safety Report 5793212-6 (Version None)
Quarter: 2008Q2

REPORT INFORMATION
  Report Type: 
  Country: None (occurrence: None)
  Receive Date: 20080626
  Receipt Date: 20080626
  Transmission Date: 20081010
  Serious: No
  Sender: FDA-Public Use
  Company Number: None

PATIENT
  Age: 34 Year
  Sex: Female
  Weight: 79.3795 kg

DRUGS (1)
  1. HYDROXYCHLOROQUINE 200MG MYLAN [Suspect]
     Indication: SYSTEMIC LUPUS ERYTHEMATOSUS
     Dosage: 1 TABLET PER DAY
     Dates: start: 20080610

REACTIONS (3)
  - GINGIVAL BLEEDING [None]
  - MENSTRUAL DISORDER [None]
  - PAIN IN EXTREMITY [None]
